FAERS Safety Report 12048007 (Version 1)
Quarter: 2016Q1

REPORT INFORMATION
  Report Type: Spontaneous
  Country: US (occurrence: None)
  Receive Date: 20160208
  Receipt Date: 20160208
  Transmission Date: 20160526
  Serious: Yes (Life-Threatening)
  Sender: FDA-Public Use
  Company Number: None

PATIENT
  Age: 62 Year
  Sex: Male
  Weight: 80.74 kg

DRUGS (6)
  1. GUAIFENESIN. [Suspect]
     Active Substance: GUAIFENESIN
     Indication: SINUS OPERATION
     Dosage: 1-2 PILLS X 2 DAILY, TWICE DAILY, TAKEN BY MOUTH
     Dates: start: 20160118, end: 20160121
  2. XYZAL [Concomitant]
     Active Substance: LEVOCETIRIZINE DIHYDROCHLORIDE
  3. VITAMIN C [Concomitant]
     Active Substance: ASCORBIC ACID
  4. VIT. D [Concomitant]
  5. GUAIFENESIN. [Suspect]
     Active Substance: GUAIFENESIN
     Indication: SINUSITIS
     Dosage: 1-2 PILLS X 2 DAILY, TWICE DAILY, TAKEN BY MOUTH
     Dates: start: 20160118, end: 20160121
  6. THYROXINE [Concomitant]
     Active Substance: LEVOTHYROXINE

REACTIONS (4)
  - Feeling abnormal [None]
  - Lethargy [None]
  - Blood pressure increased [None]
  - Immunosuppression [None]

NARRATIVE: CASE EVENT DATE: 20160121
